FAERS Safety Report 9686125 (Version 1)
Quarter: 2013Q4

REPORT INFORMATION
  Report Type: Spontaneous
  Country: US (occurrence: US)
  Receive Date: 20131113
  Receipt Date: 20131113
  Transmission Date: 20140711
  Serious: Yes (Other)
  Sender: FDA-Public Use
  Company Number: PHEH2013US023484

PATIENT
  Sex: 0

DRUGS (3)
  1. TRILEPTAL [Suspect]
  2. DILANTIN//PHENYTOIN [Suspect]
  3. DEPAKOTE [Suspect]

REACTIONS (5)
  - Visual impairment [Unknown]
  - Abasia [Unknown]
  - Vomiting [Unknown]
  - Rash [Unknown]
  - Tremor [Unknown]
